FAERS Safety Report 5952113-0 (Version None)
Quarter: 2008Q4

REPORT INFORMATION
  Report Type: 
  Country: None (occurrence: None)
  Receive Date: 20081113
  Receipt Date: 20080429
  Transmission Date: 20090506
  Serious: Yes (Other)
  Sender: FDA-Public Use
  Company Number: A0725342A

PATIENT
  Sex: Male

DRUGS (5)
  1. CARVEDILOL [Suspect]
     Indication: HYPERTENSION
     Route: 048
  2. COREG [Suspect]
     Indication: HYPERTENSION
     Route: 048
     Dates: start: 20010101
  3. WARFARIN SODIUM [Concomitant]
  4. RYTHMOL [Concomitant]
  5. TRICOR [Concomitant]

REACTIONS (6)
  - BLOOD PRESSURE FLUCTUATION [None]
  - HEART RATE DECREASED [None]
  - HYPERTENSION [None]
  - HYPOTENSION [None]
  - LOSS OF CONSCIOUSNESS [None]
  - SOMNOLENCE [None]
